FAERS Safety Report 7559496-9 (Version None)
Quarter: 2011Q2

REPORT INFORMATION
  Report Type: 
  Country: None (occurrence: None)
  Receive Date: 20110621
  Receipt Date: 20110616
  Transmission Date: 20111010
  Serious: Yes (Hospitalization)
  Sender: FDA-Public Use
  Company Number: US-SANOFI-AVENTIS-2011SA036136

PATIENT
  Age: 78 Year
  Sex: Male
  Weight: 82.27 kg

DRUGS (10)
  1. MULTAQ [Suspect]
     Indication: ATRIAL FIBRILLATION
     Route: 065
  2. ANAESTHETICS, GENERAL [Suspect]
     Route: 065
  3. MULTAQ [Suspect]
     Route: 065
     Dates: start: 20110516
  4. ASPIRIN [Concomitant]
  5. WARFARIN SODIUM [Concomitant]
  6. FELODIPINE [Concomitant]
  7. FLUOXETINE HCL [Concomitant]
  8. TOPROL-XL [Concomitant]
     Dosage: FOR THE LAST 3-4 WEEKS
  9. HYDROCHLOROTHIAZIDE [Concomitant]
  10. ZOCOR [Concomitant]

REACTIONS (12)
  - SINUS BRADYCARDIA [None]
  - HYPOXIA [None]
  - OLIGURIA [None]
  - ELECTROCARDIOGRAM QT PROLONGED [None]
  - CARDIOGENIC SHOCK [None]
  - ISCHAEMIC HEPATITIS [None]
  - HYPOTENSION [None]
  - CARDIAC FAILURE CONGESTIVE [None]
  - COAGULATION TEST ABNORMAL [None]
  - RESPIRATORY FAILURE [None]
  - METABOLIC ACIDOSIS [None]
  - RENAL FAILURE ACUTE [None]
